FAERS Safety Report 9167468 (Version 1)
Quarter: 2013Q1

REPORT INFORMATION
  Report Type: Spontaneous
  Country: US (occurrence: US)
  Receive Date: 20130318
  Receipt Date: 20130318
  Transmission Date: 20140127
  Serious: Yes (Other)
  Sender: FDA-Public Use
  Company Number: US-JNJFOC-20130302952

PATIENT
  Age: 45 Year
  Sex: Male
  Weight: 87.54 kg

DRUGS (5)
  1. XARELTO [Suspect]
     Indication: THROMBOSIS
     Route: 048
     Dates: start: 20130301, end: 20130303
  2. PRILOSEC [Concomitant]
     Indication: ABDOMINAL PAIN
     Route: 048
     Dates: start: 20130220
  3. CARAFATE [Concomitant]
     Indication: THROMBOSIS
     Route: 048
     Dates: start: 20130220
  4. TYLENOL [Concomitant]
     Indication: PAIN
     Route: 065
  5. IMITREX [Concomitant]
     Indication: MIGRAINE
     Route: 065

REACTIONS (2)
  - Pain in extremity [Recovering/Resolving]
  - Abasia [Unknown]
